FAERS Safety Report 5229192-1 (Version None)
Quarter: 2007Q1

REPORT INFORMATION
  Report Type: 
  Country: None (occurrence: None)
  Receive Date: 20061201
  Receipt Date: 20060905
  Transmission Date: 20070707
  Serious: No
  Sender: FDA-Public Use
  Company Number: US200609001149

PATIENT
  Sex: Female

DRUGS (4)
  1. CYMBALTA [Suspect]
     Indication: DEPRESSION
     Dosage: 60 MG
     Dates: start: 20060801
  2. KLONOPIN [Concomitant]
  3. EFFEXOR [Concomitant]
  4. RESTORIL [Concomitant]

REACTIONS (3)
  - CRYING [None]
  - DRUG INEFFECTIVE [None]
  - MALAISE [None]
